FAERS Safety Report 12568953 (Version 1)
Quarter: 2016Q3

REPORT INFORMATION
  Report Type: Spontaneous
  Country: US (occurrence: US)
  Receive Date: 20160719
  Receipt Date: 20160719
  Transmission Date: 20161109
  Serious: Yes (Other)
  Sender: FDA-Public Use
  Company Number: US-DRREDDYS-USA/USA/16/0081494

PATIENT
  Age: 69 Year
  Sex: Female

DRUGS (5)
  1. HABITROL [Suspect]
     Active Substance: NICOTINE
     Route: 061
  2. TRAMADOL. [Concomitant]
     Active Substance: TRAMADOL
     Indication: PRODUCT USED FOR UNKNOWN INDICATION
     Route: 065
  3. HABITROL [Suspect]
     Active Substance: NICOTINE
     Route: 061
  4. LYRICA [Concomitant]
     Active Substance: PREGABALIN
     Indication: PRODUCT USED FOR UNKNOWN INDICATION
     Route: 065
  5. HABITROL [Suspect]
     Active Substance: NICOTINE
     Indication: SMOKING CESSATION THERAPY
     Route: 061
     Dates: start: 20160416

REACTIONS (7)
  - Knee operation [Unknown]
  - Fall [Unknown]
  - Nightmare [Recovered/Resolved]
  - Abnormal dreams [Unknown]
  - Product quality issue [Unknown]
  - Joint stiffness [Recovering/Resolving]
  - Drug ineffective [Unknown]

NARRATIVE: CASE EVENT DATE: 20160501
